FAERS Safety Report 10779983 (Version 2)
Quarter: 2015Q1

REPORT INFORMATION
  Report Type: Report from Study
  Country: DE (occurrence: DE)
  Receive Date: 20150210
  Receipt Date: 20150306
  Transmission Date: 20150721
  Serious: Yes (Death)
  Sender: FDA-Public Use
  Company Number: GXKR2015DE000897

PATIENT
  Age: 81 Year
  Sex: Male
  Weight: 95 kg

DRUGS (1)
  1. LEUPRONE HEXAL [Suspect]
     Active Substance: LEUPROLIDE ACETATE

REACTIONS (1)
  - Prostate cancer [Fatal]

NARRATIVE: CASE EVENT DATE: 20141119
